FAERS Safety Report 4581396-7 (Version None)
Quarter: 2005Q1

REPORT INFORMATION
  Report Type: 
  Country: None (occurrence: None)
  Receive Date: 20050214
  Receipt Date: 20041014
  Transmission Date: 20050727
  Serious: No
  Sender: FDA-Public Use
  Company Number: US-GLAXOSMITHKLINE-A0529941A

PATIENT
  Sex: Female

DRUGS (2)
  1. LAMICTAL [Suspect]
     Dosage: 25MG PER DAY
     Route: 048
  2. RESTORIL [Concomitant]

REACTIONS (4)
  - DIPLOPIA [None]
  - INCREASED APPETITE [None]
  - INSOMNIA [None]
  - VISION BLURRED [None]
